FAERS Safety Report 13821205 (Version 1)
Quarter: 2017Q3

REPORT INFORMATION
  Report Type: Spontaneous
  Country: GB (occurrence: GB)
  Receive Date: 20170801
  Receipt Date: 20170801
  Transmission Date: 20171127
  Serious: Yes (Hospitalization)
  Sender: FDA-Public Use
  Company Number: GB-ESPERO PHARMACEUTICALS-ESP201707-000081

PATIENT
  Age: 83 Year
  Sex: Male

DRUGS (11)
  1. CANDESARTAN. [Suspect]
     Active Substance: CANDESARTAN
  2. ISOSORBIDE MONONITRATE. [Suspect]
     Active Substance: ISOSORBIDE MONONITRATE
  3. LANSOPRAZOLE. [Concomitant]
     Active Substance: LANSOPRAZOLE
  4. NITROGLYCERIN. [Suspect]
     Active Substance: NITROGLYCERIN
  5. NICORANDIL [Concomitant]
     Active Substance: NICORANDIL
  6. SOLIFENACIN [Concomitant]
     Active Substance: SOLIFENACIN
  7. BISOPROLOL [Suspect]
     Active Substance: BISOPROLOL
  8. COCODAMOL [Concomitant]
     Active Substance: ACETAMINOPHEN\CODEINE PHOSPHATE
  9. SIMVASTATIN. [Concomitant]
     Active Substance: SIMVASTATIN
  10. COLECALCIFEROL [Concomitant]
     Active Substance: CHOLECALCIFEROL
  11. DIORALYTE [Concomitant]
     Active Substance: CITRIC ACID MONOHYDRATE\DEXTROSE\POTASSIUM CATION\SODIUM CHLORIDE

REACTIONS (4)
  - Circulatory collapse [Recovered/Resolved]
  - Acute kidney injury [Not Recovered/Not Resolved]
  - Hypotension [Unknown]
  - Hyperkalaemia [Recovered/Resolved]
